FAERS Safety Report 6801584-6 (Version None)
Quarter: 2010Q2

REPORT INFORMATION
  Report Type: 
  Country: None (occurrence: None)
  Receive Date: 20100629
  Receipt Date: 20100624
  Transmission Date: 20101027
  Serious: Yes (Hospitalization, Other)
  Sender: FDA-Public Use
  Company Number: GB-GILEAD-2010-0027944

PATIENT
  Age: 29 Year
  Sex: Female

DRUGS (4)
  1. VIREAD [Suspect]
     Indication: HIV INFECTION
     Dates: end: 20100301
  2. ABACAVIR [Suspect]
     Indication: HIV INFECTION
     Dates: end: 20100301
  3. REYATAZ [Suspect]
     Indication: HIV INFECTION
     Dates: start: 20081101, end: 20100301
  4. RITONAVIR [Suspect]
     Indication: HIV INFECTION
     Dates: end: 20100301

REACTIONS (3)
  - BRAIN OEDEMA [None]
  - HEADACHE [None]
  - MALIGNANT HYPERTENSION [None]
